FAERS Safety Report 5514975-0 (Version None)
Quarter: 2007Q4

REPORT INFORMATION
  Report Type: 
  Country: None (occurrence: None)
  Receive Date: 20071113
  Receipt Date: 20061030
  Transmission Date: 20080405
  Serious: No
  Sender: FDA-Public Use
  Company Number: A0625270A

PATIENT
  Age: 97 Year
  Sex: Female

DRUGS (2)
  1. COREG [Suspect]
  2. ANTIHYPERTENSIVE [Concomitant]

REACTIONS (4)
  - BLOOD PRESSURE FLUCTUATION [None]
  - DIZZINESS [None]
  - HYPERTENSION [None]
  - HYPOTENSION [None]
